FAERS Safety Report 21789468 (Version 1)
Quarter: 2022Q4

REPORT INFORMATION
  Report Type: Spontaneous
  Country: US (occurrence: None)
  Receive Date: 20221227
  Receipt Date: 20221227
  Transmission Date: 20230113
  Serious: No
  Sender: FDA-Public Use
  Company Number: None

PATIENT
  Age: 71 Year
  Weight: 76.9 kg

DRUGS (1)
  1. PAXLOVID [Suspect]
     Active Substance: NIRMATRELVIR\RITONAVIR

REACTIONS (4)
  - Stomatitis [None]
  - Oral mucosal blistering [None]
  - Gingival discolouration [None]
  - Tongue discolouration [None]

NARRATIVE: CASE EVENT DATE: 20221208
